FAERS Safety Report 22940790 (Version 5)
Quarter: 2025Q3

REPORT INFORMATION
  Report Type: Spontaneous
  Country: US (occurrence: None)
  Receive Date: 20230913
  Receipt Date: 20250807
  Transmission Date: 20251021
  Serious: No
  Sender: INCYTE
  Company Number: US-INCYTE CORPORATION-2023IN009421

PATIENT
  Age: 65 Year
  Weight: 88.889 kg

DRUGS (10)
  1. JAKAFI [Suspect]
     Active Substance: RUXOLITINIB
     Indication: Myelofibrosis
     Dosage: 10 MILLIGRAM, BID
  2. JAKAFI [Suspect]
     Active Substance: RUXOLITINIB
     Dosage: 20 MILLIGRAM, BID
  3. ALLOPURINOL [Concomitant]
     Active Substance: ALLOPURINOL
     Indication: Product used for unknown indication
     Route: 065
  4. AMLODIPINE [Concomitant]
     Active Substance: AMLODIPINE BESYLATE
     Indication: Product used for unknown indication
     Route: 065
  5. COLCHICINE [Concomitant]
     Active Substance: COLCHICINE
     Indication: Product used for unknown indication
     Route: 065
  6. IMIQUIMOD [Concomitant]
     Active Substance: IMIQUIMOD
     Indication: Product used for unknown indication
     Route: 065
  7. INDOMETHACIN [Concomitant]
     Active Substance: INDOMETHACIN
     Indication: Product used for unknown indication
     Route: 065
  8. MEDROL [Concomitant]
     Active Substance: METHYLPREDNISOLONE
     Indication: Product used for unknown indication
     Route: 065
  9. METRONIDAZOLE [Concomitant]
     Active Substance: METRONIDAZOLE
     Indication: Product used for unknown indication
     Route: 065
  10. VONJO [Concomitant]
     Active Substance: PACRITINIB
     Indication: Product used for unknown indication
     Route: 065

REACTIONS (7)
  - Rash [Unknown]
  - Fatigue [Unknown]
  - Product dose omission issue [Unknown]
  - Weight increased [Unknown]
  - Dizziness [Unknown]
  - Headache [Unknown]
  - Anaemia [Unknown]
